FAERS Safety Report 9889082 (Version 1)
Quarter: 2014Q1

REPORT INFORMATION
  Report Type: Spontaneous
  Country: AU (occurrence: AU)
  Receive Date: 20140211
  Receipt Date: 20140211
  Transmission Date: 20141002
  Serious: Yes (Death, Hospitalization)
  Sender: FDA-Public Use
  Company Number: AU-PERRIGO-14AU001226

PATIENT
  Age: 35 Year
  Sex: Male

DRUGS (19)
  1. TESTOSTERONE ENANTHATE RX 200 MG/ML 3P5 [Suspect]
     Indication: MUSCLE BUILDING THERAPY
     Dosage: UNKNOWN, UNKNOWN
     Route: 065
  2. TESTOSTERONE PROPIONATE [Suspect]
     Indication: MUSCLE BUILDING THERAPY
     Dosage: UNKNOWN, UNKNOWN
     Route: 065
  3. ARSENIC COMPOUNDS [Suspect]
     Indication: ACCIDENTAL EXPOSURE TO PRODUCT
     Dosage: UNKNOWN, UNKNOWN
     Route: 065
  4. ANABOLIC STEROIDS [Suspect]
     Indication: MUSCLE BUILDING THERAPY
     Dosage: UNKNOWN, UNKNOWN
     Route: 065
  5. NANDROLONE DECANOATE [Suspect]
     Indication: MUSCLE BUILDING THERAPY
     Dosage: UNKNOWN, UNKNOWN
     Route: 065
  6. APPETITE STIMULANTS [Suspect]
     Indication: MUSCLE BUILDING THERAPY
     Dosage: UNKNOWN, UNKNOWN
     Route: 065
  7. IGF-1 [Suspect]
     Indication: MUSCLE BUILDING THERAPY
     Dosage: UNKNOWN, UNKNOWN
     Route: 065
  8. HUMAN GROWTH HORMONE, RECOMBINANT [Suspect]
     Indication: MUSCLE BUILDING THERAPY
     Dosage: UNKNOWN, UNKNOWN
     Route: 065
  9. TAMOXIFEN [Suspect]
     Indication: MUSCLE BUILDING THERAPY
     Dosage: UNKNOWN, UNKNOWN
     Route: 065
  10. CHORIONIC GONADOTROPHIN [Suspect]
     Indication: MUSCLE BUILDING THERAPY
     Dosage: UNKNOWN, UNKNOWN
     Route: 065
  11. T4 [Suspect]
     Indication: MUSCLE BUILDING THERAPY
     Dosage: UNKNOWN, UNKNOWN
     Route: 065
  12. CLENBUTEROL HYDROCHLORIDE [Suspect]
     Indication: MUSCLE BUILDING THERAPY
     Dosage: UNKNOWN, UNKNOWN
     Route: 065
  13. L-GLUTAMINE /00503401/ [Suspect]
     Indication: MUSCLE BUILDING THERAPY
     Dosage: UNKNOWN, UNKNOWN
     Route: 065
  14. LEUCINE [Suspect]
     Indication: MUSCLE BUILDING THERAPY
     Dosage: UNKNOWN, UNKNOWN
     Route: 065
  15. PROTEIN SUPPLEMENTS [Suspect]
     Indication: MUSCLE BUILDING THERAPY
     Dosage: UNKNOWN, UNKNOWN
     Route: 065
  16. VITAMIN C /00008001/ [Suspect]
     Indication: PRODUCT USED FOR UNKNOWN INDICATION
     Dosage: UNKNOWN, UNKNOWN
     Route: 065
  17. ZINC [Suspect]
     Indication: PRODUCT USED FOR UNKNOWN INDICATION
     Dosage: UNKNOWN, UNKNOWN
     Route: 065
  18. AMILORIDE HCL [Suspect]
     Indication: PRODUCT USED FOR UNKNOWN INDICATION
     Dosage: UNKNOWN, UNKNOWN
     Route: 065
  19. HYDROCHLOROTHIAZIDE [Suspect]
     Indication: POLYURIA
     Dosage: UNKNOWN, UNKNOWN
     Route: 065

REACTIONS (11)
  - Metal poisoning [Fatal]
  - Hepatic failure [Unknown]
  - Renal failure [Unknown]
  - Bone marrow failure [Unknown]
  - Cardiomyopathy [Unknown]
  - Hepatomegaly [Unknown]
  - Encephalopathy [Unknown]
  - Polyneuropathy [Unknown]
  - Drug abuse [Unknown]
  - Acne [Unknown]
  - Testicular atrophy [Unknown]
